FAERS Safety Report 12599469 (Version 2)
Quarter: 2016Q3

REPORT INFORMATION
  Report Type: Spontaneous
  Country: US (occurrence: US)
  Receive Date: 20160727
  Receipt Date: 20160810
  Transmission Date: 20161109
  Serious: No
  Sender: FDA-Public Use
  Company Number: US-ACTELION-A-NJ2016-139490

PATIENT
  Age: 64 Year
  Sex: Male

DRUGS (3)
  1. TARGRETIN [Concomitant]
     Active Substance: BEXAROTENE
  2. TRIAMCINOLONE [Concomitant]
     Active Substance: TRIAMCINOLONE
  3. VALCHLOR [Suspect]
     Active Substance: MECHLORETHAMINE
     Indication: MYCOSIS FUNGOIDES
     Dosage: UNK
     Route: 061
     Dates: start: 20160614

REACTIONS (3)
  - Rash pruritic [Recovering/Resolving]
  - Hypersensitivity [Unknown]
  - Blister [Unknown]
